FAERS Safety Report 21094986 (Version 1)
Quarter: 2022Q3

REPORT INFORMATION
  Report Type: Other
  Country: FR (occurrence: FR)
  Receive Date: 20220718
  Receipt Date: 20220718
  Transmission Date: 20221027
  Serious: Yes (Other)
  Sender: FDA-Public Use
  Company Number: FR-CELLTRION HEALTHCARE HUNGARY KFT-2022FR010488

PATIENT

DRUGS (8)
  1. TOCILIZUMAB [Suspect]
     Active Substance: TOCILIZUMAB
     Indication: Uveitis
     Dosage: 162 MG, 1/WEEK
     Route: 058
  2. TOCILIZUMAB [Suspect]
     Active Substance: TOCILIZUMAB
     Indication: Macular oedema
  3. TOCILIZUMAB [Suspect]
     Active Substance: TOCILIZUMAB
     Indication: Uveitis
     Dosage: 8 MG/KG EVERY 4 WEEKS
     Route: 042
  4. TOCILIZUMAB [Suspect]
     Active Substance: TOCILIZUMAB
     Indication: Macular oedema
  5. ADALIMUMAB [Suspect]
     Active Substance: ADALIMUMAB
     Indication: Macular oedema
     Dosage: 80 MG
     Route: 065
  6. ADALIMUMAB [Suspect]
     Active Substance: ADALIMUMAB
     Indication: Uveitis
     Dosage: 40 MG, Q2WEEKS
     Route: 065
  7. INFLIXIMAB [Suspect]
     Active Substance: INFLIXIMAB
     Indication: Uveitis
     Dosage: 5 MG/KG AT WEEK 0,2,6
     Route: 065
  8. INFLIXIMAB [Suspect]
     Active Substance: INFLIXIMAB
     Indication: Macular oedema
     Dosage: 5 MG/KG (EVERY 4-6 WEEKS)
     Route: 065

REACTIONS (7)
  - Hypersensitivity [Unknown]
  - Pyelonephritis [Unknown]
  - Pneumonia [Unknown]
  - Abscess [Unknown]
  - Pyrexia [Unknown]
  - Arthritis [Unknown]
  - Off label use [Unknown]
